FAERS Safety Report 4365716-4 (Version None)
Quarter: 2004Q2

REPORT INFORMATION
  Report Type: 
  Country: None (occurrence: None)
  Receive Date: 20040521
  Receipt Date: 20031219
  Transmission Date: 20050107
  Serious: Yes (Other)
  Sender: FDA-Public Use
  Company Number: M2003.6668

PATIENT
  Age: 66 Year
  Sex: Male

DRUGS (13)
  1. RIMACTANE [Suspect]
     Indication: DISSEMINATED TUBERCULOSIS
     Dosage: SEE IMAGE
     Dates: start: 20000810, end: 20000817
  2. RIMACTANE [Suspect]
     Indication: DISSEMINATED TUBERCULOSIS
     Dosage: SEE IMAGE
     Dates: end: 20001001
  3. RIMACTANE [Suspect]
     Indication: DISSEMINATED TUBERCULOSIS
     Dosage: SEE IMAGE
     Dates: start: 20000925
  4. RIMACTANE [Suspect]
     Indication: DISSEMINATED TUBERCULOSIS
     Dosage: SEE IMAGE
     Dates: start: 20001012
  5. RIMACTANE [Suspect]
     Indication: DISSEMINATED TUBERCULOSIS
     Dosage: SEE IMAGE
     Dates: start: 20001112
  6. RIMACTANE [Suspect]
     Indication: DISSEMINATED TUBERCULOSIS
     Dosage: SEE IMAGE
     Dates: start: 20001222
  7. RIMACTANE [Suspect]
     Indication: DISSEMINATED TUBERCULOSIS
     Dosage: SEE IMAGE
     Dates: start: 20010101
  8. . [Concomitant]
  9. . [Concomitant]
  10. ISONIAZID [Concomitant]
  11. ISONIAZID [Concomitant]
  12. ETHAMBUTOL HCL [Concomitant]
  13. PREDNISOLONE [Concomitant]

REACTIONS (3)
  - AGRANULOCYTOSIS [None]
  - GENERALISED ERYTHEMA [None]
  - RASH GENERALISED [None]
